FAERS Safety Report 4329147-5 (Version None)
Quarter: 2004Q1

REPORT INFORMATION
  Report Type: 
  Country: None (occurrence: None)
  Receive Date: 20040329
  Receipt Date: 20031222
  Transmission Date: 20041129
  Serious: No
  Sender: FDA-Public Use
  Company Number: 03P-163-0245435-00

PATIENT
  Age: 80 Year
  Sex: Male
  Weight: 90.7194 kg

DRUGS (6)
  1. HUMIRA [Suspect]
     Indication: RHEUMATOID ARTHRITIS
     Dosage: 40 MG, 1 IN 2 WK, SUBCUTANEOUS
     Route: 058
     Dates: start: 20031001
  2. DIGOXIN [Concomitant]
  3. QUINAPRIL HCL [Concomitant]
  4. VERAPAMIL [Concomitant]
  5. LEVOTHYROXINE SODIUM [Concomitant]
  6. WATER PILL [Concomitant]

REACTIONS (1)
  - ARTHRITIS [None]
